APPROVED DRUG PRODUCT: LEVOXYL
Active Ingredient: LEVOTHYROXINE SODIUM
Strength: 0.3MG **Federal Register determination that product was not discontinued or withdrawn for safety or effectiveness reasons**
Dosage Form/Route: TABLET;ORAL
Application: N021301 | Product #012
Applicant: KING PHARMACEUTICALS RESEARCH AND DEVELOPMENT LLC
Approved: May 25, 2001 | RLD: Yes | RS: No | Type: DISCN